FAERS Safety Report 6934487-7 (Version None)
Quarter: 2010Q3

REPORT INFORMATION
  Report Type: 
  Country: None (occurrence: None)
  Receive Date: 20100820
  Receipt Date: 20100813
  Transmission Date: 20110219
  Serious: Yes (Other)
  Sender: FDA-Public Use
  Company Number: AU-JNJCH-2010018753

PATIENT
  Sex: Male

DRUGS (2)
  1. NICORETTE PATCH STEP 1 15MG [Suspect]
     Indication: PRODUCT USED FOR UNKNOWN INDICATION
     Dosage: TEXT:UNKNOWN
     Route: 062
     Dates: start: 20100801, end: 20100801
  2. ALCOHOL [Suspect]
     Indication: ALCOHOL USE
     Dosage: TEXT:UNKNOWN
     Route: 048

REACTIONS (3)
  - ABNORMAL BEHAVIOUR [None]
  - FEELING ABNORMAL [None]
  - LOSS OF CONSCIOUSNESS [None]
